FAERS Safety Report 18746974 (Version 10)
Quarter: 2024Q3

REPORT INFORMATION
  Report Type: Report from Study
  Country: BR (occurrence: BR)
  Receive Date: 20210115
  Receipt Date: 20240830
  Transmission Date: 20241016
  Serious: Yes (Disabling, Other)
  Sender: TAKEDA
  Company Number: BR-TAKEDA-BR202003300

PATIENT
  Age: 12 Year
  Sex: Male
  Weight: 29 kg

DRUGS (12)
  1. IDURSULFASE [Suspect]
     Active Substance: IDURSULFASE
     Indication: Mucopolysaccharidosis II
     Dosage: UNK
     Route: 065
     Dates: start: 201709
  2. IDURSULFASE [Suspect]
     Active Substance: IDURSULFASE
     Dosage: 3 DOSAGE FORM, 1/WEEK
     Route: 042
     Dates: start: 201809
  3. IDURSULFASE [Suspect]
     Active Substance: IDURSULFASE
     Dosage: UNK
     Route: 065
     Dates: start: 20200122
  4. IDURSULFASE [Suspect]
     Active Substance: IDURSULFASE
     Dosage: 3 DOSAGE FORM
     Route: 065
  5. IDURSULFASE [Suspect]
     Active Substance: IDURSULFASE
     Dosage: 3 DOSAGE FORM
     Route: 042
  6. IDURSULFASE [Suspect]
     Active Substance: IDURSULFASE
     Dosage: 3 DOSAGE FORM
     Route: 042
  7. IDURSULFASE [Suspect]
     Active Substance: IDURSULFASE
     Dosage: 3 DOSAGE FORM
     Route: 042
  8. IDURSULFASE [Suspect]
     Active Substance: IDURSULFASE
     Dosage: 3 DOSAGE FORM, 1/WEEK
     Route: 042
  9. IDURSULFASE [Suspect]
     Active Substance: IDURSULFASE
     Dosage: 0.5 MILLIGRAM/KILOGRAM
     Route: 065
  10. RISPERIDONE [Concomitant]
     Active Substance: RISPERIDONE
     Dosage: UNK
     Route: 065
  11. LORATADINE [Concomitant]
     Active Substance: LORATADINE
     Indication: Product used for unknown indication
     Dosage: UNK
     Route: 065
  12. Dexa [Concomitant]
     Indication: Product used for unknown indication
     Dosage: UNK
     Route: 065

REACTIONS (13)
  - Dysentery [Not Recovered/Not Resolved]
  - COVID-19 [Recovered/Resolved]
  - Aphasia [Unknown]
  - Pneumonia [Recovering/Resolving]
  - Product availability issue [Not Recovered/Not Resolved]
  - Inappropriate schedule of product administration [Recovered/Resolved]
  - Diarrhoea [Unknown]
  - Influenza [Unknown]
  - Secretion discharge [Recovering/Resolving]
  - Illness [Unknown]
  - Product dose omission issue [Unknown]
  - Pyrexia [Recovering/Resolving]
  - Increased upper airway secretion [Unknown]

NARRATIVE: CASE EVENT DATE: 20240807
